FAERS Safety Report 7002583-4 (Version None)
Quarter: 2010Q3

REPORT INFORMATION
  Report Type: 
  Country: None (occurrence: None)
  Receive Date: 20100920
  Receipt Date: 20100217
  Transmission Date: 20110219
  Serious: Yes (Other)
  Sender: FDA-Public Use
  Company Number: US-ASTRAZENECA-2008UW27426

PATIENT
  Age: 403 Month
  Sex: Female
  Weight: 59.9 kg

DRUGS (5)
  1. SEROQUEL [Suspect]
     Indication: MENTAL DISORDER
     Dosage: 200-400 MG
     Route: 048
     Dates: start: 20050101, end: 20080901
  2. SEROQUEL [Suspect]
     Indication: DEPRESSION
     Dosage: 200-400 MG
     Route: 048
     Dates: start: 20050101, end: 20080901
  3. SEROQUEL [Suspect]
     Dosage: 300 TO 400 MG QHS
     Route: 048
     Dates: start: 20060706
  4. SEROQUEL [Suspect]
     Dosage: 300 TO 400 MG QHS
     Route: 048
     Dates: start: 20060706
  5. ZOLOFT [Concomitant]
     Dosage: 100 TO 150 MG QAM
     Dates: start: 20060706

REACTIONS (2)
  - DIABETES MELLITUS [None]
  - DIABETIC COMA [None]
